FAERS Safety Report 5130187-7 (Version None)
Quarter: 2006Q4

REPORT INFORMATION
  Report Type: 
  Country: None (occurrence: None)
  Receive Date: 20061013
  Receipt Date: 20060929
  Transmission Date: 20070319
  Serious: Yes (Hospitalization)
  Sender: FDA-Public Use
  Company Number: TRP_0876_2006

PATIENT
  Age: 57 Year
  Sex: Male

DRUGS (6)
  1. RIBASPHERE [Suspect]
     Indication: HEPATITIS C
     Dosage: 1200 MG QDAY PO
     Route: 048
     Dates: start: 20041026, end: 20041221
  2. INFERGEN [Suspect]
     Indication: HEPATITIS C
     Dosage: 15 U QDAY SC
     Route: 058
     Dates: start: 20041026, end: 20050403
  3. RIBASPHERE [Suspect]
     Indication: HEPATITIS C
     Dosage: 600 MG QDAY PO
     Route: 048
     Dates: start: 20041222, end: 20050403
  4. GLUCOVANCE [Concomitant]
  5. ATENOLOL [Concomitant]
  6. FLEXERIL [Concomitant]

REACTIONS (7)
  - ALPHA 1 FOETOPROTEIN INCREASED [None]
  - DIZZINESS [None]
  - HYPERKALAEMIA [None]
  - HYPONATRAEMIA [None]
  - JAUNDICE [None]
  - PNEUMONIA [None]
  - RHABDOMYOLYSIS [None]
